FAERS Safety Report 23958401 (Version 1)
Quarter: 2024Q2

REPORT INFORMATION
  Report Type: Spontaneous
  Country: US (occurrence: US)
  Receive Date: 20240610
  Receipt Date: 20240610
  Transmission Date: 20240716
  Serious: No
  Sender: FDA-Public Use
  Company Number: US-009507513-2406USA002424

PATIENT
  Sex: Male

DRUGS (3)
  1. KEYTRUDA [Suspect]
     Active Substance: PEMBROLIZUMAB
     Indication: Hepatic angiosarcoma
  2. PACLITAXEL [Suspect]
     Active Substance: PACLITAXEL
     Indication: Hepatic angiosarcoma
  3. GEMCITABINE [Suspect]
     Active Substance: GEMCITABINE
     Indication: Hepatic angiosarcoma

REACTIONS (1)
  - Off label use [Unknown]
